FAERS Safety Report 15822453 (Version 2)
Quarter: 2023Q4

REPORT INFORMATION
  Report Type: Spontaneous
  Country: IT (occurrence: IT)
  Receive Date: 20190114
  Receipt Date: 20231128
  Transmission Date: 20240109
  Serious: Yes (Other)
  Sender: FDA-Public Use
  Company Number: None

PATIENT

DRUGS (24)
  1. LAMOTRIGINE [Interacting]
     Active Substance: LAMOTRIGINE
     Indication: Partial seizures
     Dosage: 350 MG, QD
     Route: 065
  2. LAMOTRIGINE [Interacting]
     Active Substance: LAMOTRIGINE
     Dosage: 450 MG, QD
     Route: 065
  3. LEVETIRACETAM [Interacting]
     Active Substance: LEVETIRACETAM
     Indication: Generalised tonic-clonic seizure
     Dosage: UNK
     Route: 048
  4. KEPPRA [Interacting]
     Active Substance: LEVETIRACETAM
     Indication: Generalised tonic-clonic seizure
     Dosage: 3000 MG, QD (1000 MG, TID (3 IN 1 D))
     Route: 048
     Dates: start: 20110418
  5. CETRORELIX ACETATE [Suspect]
     Active Substance: CETRORELIX ACETATE
     Indication: In vitro fertilisation
     Dosage: 0.25 MG, FOR 8 DAYS, RECEIVED DURING IN VITRO FERTILIZATION)
     Route: 065
  6. CETRORELIX ACETATE [Suspect]
     Active Substance: CETRORELIX ACETATE
     Indication: Hormone therapy
     Dosage: UNK
     Route: 065
  7. CETRORELIX ACETATE [Suspect]
     Active Substance: CETRORELIX ACETATE
     Indication: Hypothalamo-pituitary disorder
     Dosage: UNK
     Route: 065
  8. GESTODENE [Suspect]
     Active Substance: GESTODENE
     Indication: In vitro fertilisation
     Dosage: 0.03 MG,SCHEDULED TO BE ADMINISTERED FOR 28 DAYS;RECEIVED DURING IN VITRO FERTILIZATION
     Route: 065
  9. GESTODENE [Suspect]
     Active Substance: GESTODENE
     Indication: Hormone therapy
     Dosage: UNK
     Route: 065
  10. ESTRADIOL [Interacting]
     Active Substance: ESTRADIOL
     Indication: Assisted reproductive technology
     Dosage: 4 MG ( FOR 10 DAYS) )
     Route: 065
  11. ESTRADIOL [Interacting]
     Active Substance: ESTRADIOL
     Indication: Hormone therapy
  12. ETHINYL ESTRADIOL [Suspect]
     Active Substance: ETHINYL ESTRADIOL
     Indication: In vitro fertilisation
     Dosage: 0.08 MG,0.075 MG,SCHEDULED TO BE ADMINISTERED FOR 28 DAYS;RECEIVED DURING IN VITRO FERTILIZATION
     Route: 065
  13. ETHINYL ESTRADIOL [Suspect]
     Active Substance: ETHINYL ESTRADIOL
     Indication: Hormone therapy
     Dosage: UNK
     Route: 065
  14. FOLLITROPIN ALFA [Suspect]
     Active Substance: FOLLITROPIN ALFA
     Indication: Controlled ovarian stimulation
     Dosage: UNK
     Route: 065
  15. MENOTROPINS [Suspect]
     Active Substance: MENOTROPINS
     Indication: Controlled ovarian stimulation
     Dosage: UNK
     Route: 065
  16. FOLLITROPIN BETA [Suspect]
     Active Substance: FOLLITROPIN BETA
     Indication: Hormone therapy
     Dosage: UNK
     Route: 065
  17. FOLLITROPIN BETA [Suspect]
     Active Substance: FOLLITROPIN BETA
     Indication: Controlled ovarian stimulation
     Dosage: UNK
     Route: 065
  18. FOLLITROPIN BETA [Suspect]
     Active Substance: FOLLITROPIN BETA
     Indication: In vitro fertilisation
     Dosage: UNK
     Route: 065
  19. FOLLITROPIN BETA [Suspect]
     Active Substance: FOLLITROPIN BETA
     Indication: Hypothalamo-pituitary disorder
     Dosage: 300 IU, QD;SCHEDULED TO BE ADMINISTERED FOR 8 DAYS; RECEIVED DURING IN VITRO FERTILIZATION
     Route: 030
     Dates: start: 20120517, end: 20120524
  20. CORIFOLLITROPIN ALFA [Suspect]
     Active Substance: CORIFOLLITROPIN ALFA
     Indication: Controlled ovarian stimulation
     Dosage: UNK
     Route: 065
  21. ENANTONE LP [Suspect]
     Active Substance: LEUPROLIDE ACETATE
     Indication: Controlled ovarian stimulation
     Dosage: UNK
     Route: 065
  22. CHORIOGONADOTROPIN ALFA [Suspect]
     Active Substance: CHORIOGONADOTROPIN ALFA
     Indication: Controlled ovarian stimulation
     Dosage: UNK
     Route: 065
  23. CLOBAZAM [Concomitant]
     Active Substance: CLOBAZAM
     Indication: Epilepsy
     Dosage: 20 MG, QD (10 MG, BID (10 MG,2 MG) IN 1 D))
     Route: 065
  24. CLOBAZAM [Concomitant]
     Active Substance: CLOBAZAM
     Indication: Epilepsy
     Dosage: 30 MG
     Route: 065

REACTIONS (6)
  - Generalised tonic-clonic seizure [Recovered/Resolved]
  - Condition aggravated [Recovered/Resolved]
  - Generalised tonic-clonic seizure [Recovered/Resolved]
  - Blood oestrogen increased [Unknown]
  - Drug interaction [Unknown]
  - Drug level decreased [Unknown]

NARRATIVE: CASE EVENT DATE: 20120521
